FAERS Safety Report 18308760 (Version 1)
Quarter: 2020Q3

REPORT INFORMATION
  Report Type: Spontaneous
  Country: US (occurrence: US)
  Receive Date: 20200925
  Receipt Date: 20200925
  Transmission Date: 20201103
  Serious: Yes (Other)
  Sender: FDA-Public Use
  Company Number: US-SUN PHARMACEUTICAL INDUSTRIES LTD-2020R1-261733

PATIENT
  Age: 65 Year
  Sex: Female

DRUGS (1)
  1. LITHIUM. [Suspect]
     Active Substance: LITHIUM
     Indication: BIPOLAR DISORDER
     Dosage: 900 MILLIGRAM, DAILY
     Route: 065

REACTIONS (6)
  - Hyperparathyroidism [Recovering/Resolving]
  - Renal tubular injury [Unknown]
  - Goitre [Unknown]
  - Nephrogenic diabetes insipidus [Unknown]
  - Nephropathy [Unknown]
  - Hypercalcaemia [Recovering/Resolving]
